FAERS Safety Report 10048211 (Version 1)
Quarter: 2014Q1

REPORT INFORMATION
  Report Type: Spontaneous
  Country: US (occurrence: US)
  Receive Date: 20140331
  Receipt Date: 20140331
  Transmission Date: 20141002
  Serious: No
  Sender: FDA-Public Use
  Company Number: US-PFIZER INC-2014087937

PATIENT
  Age: 61 Year
  Sex: Female
  Weight: 87.08 kg

DRUGS (4)
  1. NEURONTIN [Suspect]
     Dosage: 300 MG, 3X/DAY
     Dates: start: 2013, end: 2013
  2. NUCYNTA [Concomitant]
     Indication: BREAKTHROUGH PAIN
     Dosage: UNK, AS NEEDED
  3. MS CONTIN [Concomitant]
     Dosage: 15 MG, 3X/DAY
  4. PERCOCET [Concomitant]
     Dosage: [OXYCODONE 7.5 MG]/[PARACETAMOL 325MG], 3X/DAY

REACTIONS (1)
  - Drug effect incomplete [Unknown]
